FAERS Safety Report 22082748 (Version 1)
Quarter: 2023Q1

REPORT INFORMATION
  Report Type: Spontaneous
  Country: US (occurrence: US)
  Receive Date: 20230310
  Receipt Date: 20230310
  Transmission Date: 20230418
  Serious: No
  Sender: FDA-Public Use
  Company Number: US-BRISTOL-MYERS SQUIBB COMPANY-2023-034498

PATIENT
  Age: 75 Year
  Sex: Male
  Weight: 67.13 kg

DRUGS (1)
  1. THALOMID [Suspect]
     Active Substance: THALIDOMIDE
     Indication: Plasma cell myeloma
     Dosage: 14D ON 14D OFF
     Route: 048
     Dates: start: 20220901

REACTIONS (2)
  - Blood glucose fluctuation [Unknown]
  - Off label use [Unknown]
